FAERS Safety Report 13333571 (Version 2)
Quarter: 2017Q1

REPORT INFORMATION
  Report Type: Spontaneous
  Country: KR (occurrence: KR)
  Receive Date: 20170313
  Receipt Date: 20170321
  Transmission Date: 20170428
  Serious: Yes (Other)
  Sender: FDA-Public Use
  Company Number: KR-PFIZER INC-2017097493

PATIENT
  Age: 5 Year

DRUGS (2)
  1. ZITHROMAX [Suspect]
     Active Substance: AZITHROMYCIN DIHYDRATE
     Dosage: 60 MG/KG, UNK
     Route: 040
  2. CEFTRIAXONE. [Concomitant]
     Active Substance: CEFTRIAXONE
     Dosage: UNK

REACTIONS (5)
  - Brain death [Unknown]
  - Product use issue [Unknown]
  - Cardiac arrest [Unknown]
  - Disability [Unknown]
  - Anaphylactic reaction [Unknown]
